FAERS Safety Report 17475342 (Version 1)
Quarter: 2020Q1

REPORT INFORMATION
  Report Type: Report from Study
  Country: CA (occurrence: CA)
  Receive Date: 20200228
  Receipt Date: 20200228
  Transmission Date: 20200409
  Serious: Yes (Other)
  Sender: FDA-Public Use
  Company Number: CA-JNJFOC-20190315464

PATIENT
  Age: 44 Year
  Sex: Female
  Weight: 65.1 kg

DRUGS (1)
  1. STELARA [Suspect]
     Active Substance: USTEKINUMAB
     Indication: CROHN^S DISEASE
     Dosage: STRENGTH = 90 MG
     Route: 058

REACTIONS (9)
  - Sinusitis [Recovered/Resolved]
  - Frustration tolerance decreased [Unknown]
  - Crohn^s disease [Not Recovered/Not Resolved]
  - Dyspepsia [Unknown]
  - Hypotension [Unknown]
  - Drug ineffective [Unknown]
  - Nightmare [Unknown]
  - Victim of crime [Recovered/Resolved]
  - Palpitations [Recovered/Resolved]

NARRATIVE: CASE EVENT DATE: 20190304
